FAERS Safety Report 17916529 (Version 1)
Quarter: 2020Q2

REPORT INFORMATION
  Report Type: Spontaneous
  Country: FR (occurrence: FR)
  Receive Date: 20200619
  Receipt Date: 20200619
  Transmission Date: 20200714
  Serious: Yes (Hospitalization)
  Sender: FDA-Public Use
  Company Number: FR-TEVA-2020-FR-1788964

PATIENT
  Age: 87 Year
  Sex: Male
  Weight: 55 kg

DRUGS (2)
  1. DIGOXINE NATIVELLE 0,25 MG, COMPRIME [Suspect]
     Active Substance: DIGOXIN
     Indication: ARRHYTHMIA
     Dosage: 1 DOSAGE FORM
     Route: 048
     Dates: end: 20200426
  2. HEMIFUMARATE DE BISOPROLOL [Suspect]
     Active Substance: BISOPROLOL FUMARATE
     Indication: PRODUCT USED FOR UNKNOWN INDICATION
     Dosage: 1.5 DOSAGE FORM
     Route: 048
     Dates: end: 20200426

REACTIONS (1)
  - Sinus bradycardia [Not Recovered/Not Resolved]

NARRATIVE: CASE EVENT DATE: 20200426
